FAERS Safety Report 15603023 (Version 1)
Quarter: 2018Q4

REPORT INFORMATION
  Report Type: Spontaneous
  Country: US (occurrence: US)
  Receive Date: 20181109
  Receipt Date: 20181109
  Transmission Date: 20190205
  Serious: No
  Sender: FDA-Public Use
  Company Number: US-BAYER-2018-207227

PATIENT
  Age: 37 Year
  Sex: Female
  Weight: 68 kg

DRUGS (4)
  1. CORTISONE ACETATE. [Concomitant]
     Active Substance: CORTISONE ACETATE
  2. ALEVE BACK AND MUSCLE PAIN [Suspect]
     Active Substance: NAPROXEN SODIUM
     Indication: PAIN
     Dosage: 3 TABLETS
     Route: 048
     Dates: start: 20181106, end: 20181106
  3. GLUCOSAMINE [Concomitant]
     Active Substance: GLUCOSAMINE
  4. FISH OIL [Concomitant]
     Active Substance: FISH OIL

REACTIONS (3)
  - Abdominal pain [Unknown]
  - Product use issue [Unknown]
  - Dry mouth [Unknown]

NARRATIVE: CASE EVENT DATE: 20181106
